FAERS Safety Report 8837686 (Version 1)
Quarter: 2012Q4

REPORT INFORMATION
  Report Type: 
  Country: US (occurrence: US)
  Receive Date: 20121012
  Receipt Date: 20121012
  Transmission Date: 20130627
  Serious: Yes (Hospitalization)
  Sender: FDA-Public Use
  Company Number: US-ROCHE-1141673

PATIENT
  Sex: Female

DRUGS (5)
  1. PROTROPIN [Suspect]
     Indication: GROWTH HORMONE DEFICIENCY
     Route: 065
  2. TUMS [Concomitant]
     Dosage: 2
     Route: 065
  3. CLARITIN [Concomitant]
  4. SINGULAIR [Concomitant]
  5. FLOVENT [Concomitant]

REACTIONS (4)
  - Acute respiratory failure [Unknown]
  - Malaise [Unknown]
  - Cystitis [Unknown]
  - Nocturia [Unknown]
